FAERS Safety Report 8514042-8 (Version None)
Quarter: 2012Q2

REPORT INFORMATION
  Report Type: 
  Country: None (occurrence: None)
  Receive Date: 20120406
  Receipt Date: 20081117
  Transmission Date: 20120825
  Serious: Yes (Other)
  Sender: FDA-Public Use
  Company Number: PHEH2008US10345

PATIENT

DRUGS (2)
  1. KEPPRA [Concomitant]
  2. TASIGNA [Suspect]

REACTIONS (2)
  - CHEST PAIN [None]
  - PALPITATIONS [None]
